FAERS Safety Report 8954892 (Version 1)
Quarter: 2012Q4

REPORT INFORMATION
  Report Type: 
  Country: IT (occurrence: IT)
  Receive Date: 20121210
  Receipt Date: 20121210
  Transmission Date: 20130627
  Serious: Yes (Other)
  Sender: FDA-Public Use
  Company Number: IT-BAYER-2012-126761

PATIENT
  Age: 67 Year
  Sex: Male

DRUGS (7)
  1. DACARBAZINE [Suspect]
     Indication: HODGKIN^S DISEASE STAGE III
  2. DOXORUBICIN [Suspect]
     Indication: HODGKIN^S DISEASE STAGE III
  3. BLEOMYCIN [Suspect]
     Indication: HODGKIN^S DISEASE STAGE III
  4. VINBLASTINE [Suspect]
     Indication: HODGKIN^S DISEASE STAGE III
  5. DEXAMETHASONE [Suspect]
     Indication: HODGKIN^S DISEASE STAGE III
  6. CISPLATIN [Suspect]
     Indication: HODGKIN^S DISEASE STAGE III
  7. CYTARABINE [Suspect]
     Indication: HODGKIN^S DISEASE STAGE III

REACTIONS (2)
  - Tuberculosis [Recovered/Resolved]
  - Hodgkin^s disease stage IV [None]
